FAERS Safety Report 7534402-1 (Version None)
Quarter: 2011Q2

REPORT INFORMATION
  Report Type: 
  Country: None (occurrence: None)
  Receive Date: 20110608
  Receipt Date: 20110524
  Transmission Date: 20111010
  Serious: No
  Sender: FDA-Public Use
  Company Number: US-AMGEN-USASP2011027419

PATIENT
  Age: 79 Year
  Sex: Female

DRUGS (9)
  1. PROLIA [Suspect]
     Indication: PRODUCT USED FOR UNKNOWN INDICATION
     Dosage: 60 MG, Q6MO
     Dates: start: 20110414
  2. MULTIVITAMIN                       /00097801/ [Concomitant]
  3. CALCIUM/VITAMIN D                  /00188401/ [Concomitant]
  4. NORVASC [Concomitant]
  5. RELAFEN [Concomitant]
  6. GABAPENTIN [Concomitant]
  7. CORTISONE ACETATE [Suspect]
  8. ATENOLOL [Concomitant]
  9. COZAAR [Concomitant]

REACTIONS (2)
  - GAIT DISTURBANCE [None]
  - ARTHRALGIA [None]
